FAERS Safety Report 21939823 (Version 1)
Quarter: 2023Q1

REPORT INFORMATION
  Report Type: Spontaneous
  Country: MX (occurrence: MX)
  Receive Date: 20230201
  Receipt Date: 20230201
  Transmission Date: 20230418
  Serious: No
  Sender: FDA-Public Use
  Company Number: MX-EXELIXIS-CABO-22048964

PATIENT
  Sex: Male

DRUGS (1)
  1. CABOMETYX [Suspect]
     Active Substance: CABOZANTINIB S-MALATE
     Indication: Product used for unknown indication
     Dosage: UNK

REACTIONS (6)
  - Gastrointestinal toxicity [Unknown]
  - Peripheral venous disease [Unknown]
  - Decreased appetite [Unknown]
  - Fatigue [Unknown]
  - Mucosal inflammation [Unknown]
  - Skin ulcer [Unknown]
